FAERS Safety Report 11458268 (Version 5)
Quarter: 2025Q2

REPORT INFORMATION
  Report Type: Report from Study
  Country: US (occurrence: US)
  Receive Date: 20150904
  Receipt Date: 20250616
  Transmission Date: 20250717
  Serious: Yes (Hospitalization, Other)
  Sender: TAKEDA
  Company Number: US-SHIRE-US201509406

PATIENT
  Sex: Female

DRUGS (32)
  1. FIRAZYR [Suspect]
     Active Substance: ICATIBANT ACETATE
     Indication: Hereditary angioedema
  2. FIRAZYR [Suspect]
     Active Substance: ICATIBANT ACETATE
  3. LANADELUMAB [Suspect]
     Active Substance: LANADELUMAB
     Indication: Immune system disorder
     Dosage: 300 MILLIGRAM, Q4WEEKS
     Dates: start: 202007
  4. LANADELUMAB [Suspect]
     Active Substance: LANADELUMAB
  5. LANADELUMAB [Suspect]
     Active Substance: LANADELUMAB
  6. PHENERGAN [Concomitant]
     Active Substance: PROMETHAZINE HYDROCHLORIDE
     Indication: Abdominal pain
  7. PHENERGAN [Concomitant]
     Active Substance: PROMETHAZINE HYDROCHLORIDE
     Indication: Nausea
  8. CLONIDINE [Concomitant]
     Active Substance: CLONIDINE
     Dosage: 1 MILLIGRAM, BID
  9. COZAAR [Concomitant]
     Active Substance: LOSARTAN POTASSIUM
     Dosage: 50 MILLIGRAM, BID
     Dates: start: 2004
  10. FOLIC ACID [Concomitant]
     Active Substance: FOLIC ACID
     Dosage: 1 MILLIGRAM, QD
  11. FUROSEMIDE [Concomitant]
     Active Substance: FUROSEMIDE
     Dosage: 40 MILLIGRAM, QD
  12. MYCOPHENOLIC ACID [Concomitant]
     Active Substance: MYCOPHENOLIC ACID
     Indication: Systemic lupus erythematosus
     Dosage: 500 MILLIGRAM, QD
  13. MYCOPHENOLIC ACID [Concomitant]
     Active Substance: MYCOPHENOLIC ACID
     Indication: Nephritis
  14. PLAQUENIL [Concomitant]
     Active Substance: HYDROXYCHLOROQUINE SULFATE
     Indication: Systemic lupus erythematosus
     Dosage: 200 MILLIGRAM, BID
  15. PLAQUENIL [Concomitant]
     Active Substance: HYDROXYCHLOROQUINE SULFATE
     Indication: Nephritis
  16. POTASSIUM [Concomitant]
     Active Substance: POTASSIUM
     Dosage: UNK UNK, QD
  17. PROMETHAZINE [Concomitant]
     Active Substance: PROMETHAZINE HYDROCHLORIDE
  18. PROMETHAZINE [Concomitant]
     Active Substance: PROMETHAZINE HYDROCHLORIDE
  19. SPIRONOLACTONE [Concomitant]
     Active Substance: SPIRONOLACTONE
     Dosage: 25 MILLIGRAM, QD
  20. Tylenol pm, extra strength [Concomitant]
  21. ALLOPURINOL [Concomitant]
     Active Substance: ALLOPURINOL
     Dosage: UNK UNK, QD
  22. ASPIRIN [Concomitant]
     Active Substance: ASPIRIN
  23. CHOLECALCIFEROL [Concomitant]
     Active Substance: CHOLECALCIFEROL
     Dosage: UNK UNK, QD
  24. CLONIDINE HYDROCHLORIDE [Concomitant]
     Active Substance: CLONIDINE HYDROCHLORIDE
     Dosage: UNK UNK, QD
  25. COLCHICINE [Concomitant]
     Active Substance: COLCHICINE
  26. EZETIMIBE [Concomitant]
     Active Substance: EZETIMIBE
     Dosage: UNK UNK, QD
  27. HYDROXYCHLOROQUINE [Concomitant]
     Active Substance: HYDROXYCHLOROQUINE
     Dosage: UNK UNK, Q12H
  28. LOSARTAN [Concomitant]
     Active Substance: LOSARTAN
     Dosage: UNK UNK, QD
  29. MYCOPHENOLATE MOFETIL [Concomitant]
     Active Substance: MYCOPHENOLATE MOFETIL
     Dosage: UNK UNK, QD
  30. OMEPRAZOLE [Concomitant]
     Active Substance: OMEPRAZOLE
     Dosage: UNK UNK, QD
  31. POTASSIUM CHLORIDE [Concomitant]
     Active Substance: POTASSIUM CHLORIDE
  32. WARFARIN [Concomitant]
     Active Substance: WARFARIN
     Dosage: UNK UNK, QD

REACTIONS (13)
  - Cholecystitis acute [Recovered/Resolved]
  - Cataract [Unknown]
  - Hereditary angioedema [Recovered/Resolved]
  - Pulmonary embolism [Recovered/Resolved]
  - Weight increased [Unknown]
  - Weight decreased [Unknown]
  - Heart rate increased [Unknown]
  - Abdominal pain upper [Recovered/Resolved]
  - Diarrhoea [Recovered/Resolved]
  - Pain [Unknown]
  - Muscle spasms [Unknown]
  - Vomiting [Not Recovered/Not Resolved]
  - Nausea [Not Recovered/Not Resolved]

NARRATIVE: CASE EVENT DATE: 20150101
